FAERS Safety Report 8384222-3 (Version None)
Quarter: 2012Q2

REPORT INFORMATION
  Report Type: 
  Country: None (occurrence: None)
  Receive Date: 20120524
  Receipt Date: 20120514
  Transmission Date: 20120825
  Serious: Yes (Hospitalization)
  Sender: FDA-Public Use
  Company Number: RS-NOVOPROD-351561

PATIENT
  Age: 12 Year
  Sex: Female
  Weight: 66 kg

DRUGS (5)
  1. AZITROMICINA [Concomitant]
     Dosage: 500 MG, QD
     Route: 048
     Dates: start: 20120321
  2. NORDITROPIN [Suspect]
     Indication: TURNER'S SYNDROME
     Dosage: 2 MG, QD
     Route: 058
     Dates: start: 20080722, end: 20120425
  3. AZITROMICINA [Concomitant]
     Dosage: 250 MG, QD
     Route: 048
     Dates: start: 20120322, end: 20120325
  4. ERYTHROMYCIN [Concomitant]
     Dosage: 500 MG, TID
     Route: 048
     Dates: start: 20120402, end: 20120407
  5. BACTRIM [Concomitant]
     Dosage: 960 MG, BID
     Dates: start: 20120423, end: 20120424

REACTIONS (1)
  - IRON DEFICIENCY ANAEMIA [None]
